FAERS Safety Report 8056204-2 (Version None)
Quarter: 2012Q1

REPORT INFORMATION
  Report Type: 
  Country: None (occurrence: None)
  Receive Date: 20120119
  Receipt Date: 20120109
  Transmission Date: 20120608
  Serious: Yes (Hospitalization)
  Sender: FDA-Public Use
  Company Number: US-BAYER-2011-039059

PATIENT
  Sex: Female
  Weight: 56.689 kg

DRUGS (3)
  1. IBUPROFEN (ADVIL) [Concomitant]
  2. YAZ [Suspect]
     Dosage: UNK
     Dates: start: 20060101, end: 20070101
  3. VITAMIN TAB [Concomitant]

REACTIONS (6)
  - ANHEDONIA [None]
  - CHOLELITHIASIS [None]
  - ANXIETY [None]
  - PAIN [None]
  - FEAR [None]
  - QUALITY OF LIFE DECREASED [None]
